FAERS Safety Report 7424167-6 (Version None)
Quarter: 2011Q2

REPORT INFORMATION
  Report Type: 
  Country: None (occurrence: None)
  Receive Date: 20110419
  Receipt Date: 20110408
  Transmission Date: 20111010
  Serious: Yes (Hospitalization, Other)
  Sender: FDA-Public Use
  Company Number: US-MERCK-1006USA01601

PATIENT
  Age: 74 Year
  Sex: Female
  Weight: 54 kg

DRUGS (10)
  1. FOSAMAX [Suspect]
     Route: 048
     Dates: start: 20001101, end: 20081215
  2. VITAMINS (UNSPECIFIED) [Concomitant]
     Route: 065
  3. ALENDRONATE SODIUM [Suspect]
     Route: 048
     Dates: start: 20080701, end: 20080901
  4. VITAMIN D (UNSPECIFIED) [Concomitant]
     Route: 065
  5. VITAMIN E [Concomitant]
     Route: 065
  6. CORTICOSTEROIDS (UNSPECIFIED) [Concomitant]
     Route: 065
     Dates: start: 20060101, end: 20060101
  7. FOSAMAX [Suspect]
     Indication: OSTEOPOROSIS
     Route: 048
     Dates: start: 19960101, end: 20000101
  8. CALCIUM (UNSPECIFIED) [Concomitant]
     Route: 065
  9. FOSAMAX PLUS D [Suspect]
     Route: 048
  10. ASCORBIC ACID [Concomitant]
     Route: 065

REACTIONS (23)
  - BACK DISORDER [None]
  - IMPAIRED HEALING [None]
  - ARTHROPATHY [None]
  - ABDOMINAL DISTENSION [None]
  - DIVERTICULUM [None]
  - FEMUR FRACTURE [None]
  - ABSCESS [None]
  - TOOTH DISORDER [None]
  - CARDITIS [None]
  - OROPHARYNGEAL PAIN [None]
  - SKIN CANCER [None]
  - STAPHYLOCOCCAL INFECTION [None]
  - DRUG HYPERSENSITIVITY [None]
  - IRRITABLE BOWEL SYNDROME [None]
  - RECTAL POLYP [None]
  - ASTHENIA [None]
  - FALL [None]
  - HEADACHE [None]
  - DENTAL CARIES [None]
  - GASTROOESOPHAGEAL REFLUX DISEASE [None]
  - MELANOSIS COLI [None]
  - LOW TURNOVER OSTEOPATHY [None]
  - DENTAL DISCOMFORT [None]
